FAERS Safety Report 8823637 (Version 1)
Quarter: 2012Q4

REPORT INFORMATION
  Report Type: 
  Country: US (occurrence: US)
  Receive Date: 20121003
  Receipt Date: 20121003
  Transmission Date: 20130627
  Serious: No
  Sender: FDA-Public Use
  Company Number: US-VERTEX PHARMACEUTICAL INC.-2012-021105

PATIENT
  Sex: Female

DRUGS (5)
  1. VX-950 [Suspect]
     Indication: HEPATITIS C
     Dosage: 750 mg, tid
     Route: 048
  2. GUMMY BITES CHW [Concomitant]
  3. CALCIUM [Concomitant]
  4. FERROUS SULFATE [Concomitant]
  5. B-12 [Concomitant]
     Dosage: 1000 ?g, UNK

REACTIONS (1)
  - Vision blurred [Unknown]
